FAERS Safety Report 5117698-5 (Version None)
Quarter: 2006Q3

REPORT INFORMATION
  Report Type: 
  Country: None (occurrence: None)
  Receive Date: 20060928
  Receipt Date: 20060928
  Transmission Date: 20061208
  Serious: Yes (Hospitalization)
  Sender: FDA-Public Use
  Company Number: None

PATIENT
  Age: 87 Year
  Sex: Male

DRUGS (1)
  1. DARBEPOETIN ALFA  25MCG/0.42ML [Suspect]
     Indication: ANAEMIA
     Dosage: 25MCG WEEKLY SQ
     Route: 058
     Dates: start: 20060629, end: 20060702

REACTIONS (4)
  - BONE PAIN [None]
  - MYALGIA [None]
  - PAIN [None]
  - PAIN IN EXTREMITY [None]
